FAERS Safety Report 9240135 (Version 4)
Quarter: 2017Q2

REPORT INFORMATION
  Report Type: Spontaneous
  Country: US (occurrence: US)
  Receive Date: 20130418
  Receipt Date: 20170515
  Transmission Date: 20170830
  Serious: Yes (Disabling, Other)
  Sender: FDA-Public Use
  Company Number: US-009507513-1304USA008283

PATIENT
  Sex: Male

DRUGS (5)
  1. PROPECIA [Suspect]
     Active Substance: FINASTERIDE
     Indication: ANDROGENETIC ALOPECIA
     Dosage: 1 MG, QD
     Route: 048
     Dates: start: 2002, end: 2010
  2. PROPECIA [Suspect]
     Active Substance: FINASTERIDE
     Dosage: 1 MG, QD
     Route: 048
     Dates: start: 2002, end: 2005
  3. PROPECIA [Suspect]
     Active Substance: FINASTERIDE
     Dosage: 1 MG, QD
     Route: 048
     Dates: start: 2006, end: 20100614
  4. PROSCAR [Suspect]
     Active Substance: FINASTERIDE
     Indication: ANDROGENETIC ALOPECIA
     Dosage: 5 MG CUT INTO 1 MG PIECES, UNKNOWN
     Route: 048
     Dates: start: 2002, end: 200710
  5. PROPECIA [Suspect]
     Active Substance: FINASTERIDE
     Dosage: 1 MG, QD
     Route: 048
     Dates: start: 200710, end: 20100614

REACTIONS (14)
  - Anxiety [Unknown]
  - Orchitis [Unknown]
  - Semen analysis abnormal [Not Recovered/Not Resolved]
  - Insomnia [Unknown]
  - Inguinal hernia [Unknown]
  - Hiatus hernia [Unknown]
  - Infertility male [Not Recovered/Not Resolved]
  - Pneumonia [Unknown]
  - Varicocele [Unknown]
  - Epididymitis [Unknown]
  - Testicular pain [Unknown]
  - Wrong technique in product usage process [Unknown]
  - Haematoma [Unknown]
  - Off label use [Unknown]

NARRATIVE: CASE EVENT DATE: 20090227
